FAERS Safety Report 23343084 (Version 1)
Quarter: 2023Q4

REPORT INFORMATION
  Report Type: Spontaneous
  Country: IT (occurrence: IT)
  Receive Date: 20231227
  Receipt Date: 20231227
  Transmission Date: 20240109
  Serious: Yes (Hospitalization)
  Sender: FDA-Public Use
  Company Number: None

PATIENT
  Age: 18 Year
  Sex: Female
  Weight: 77 kg

DRUGS (1)
  1. SECUKINUMAB [Suspect]
     Active Substance: SECUKINUMAB
     Indication: Psoriasis
     Dosage: INDUCTION PERFORMED WITH 5 WEEKLY DOSES, FROM 9/28 TO 10/25. SKIPPED THE NEXT DOSE ON 11/23/23 BECAU
     Route: 065
     Dates: start: 20230928, end: 20231123

REACTIONS (3)
  - Pneumonia [Recovering/Resolving]
  - Genital ulcer syndrome [Recovered/Resolved]
  - Stomatitis [Recovered/Resolved]

NARRATIVE: CASE EVENT DATE: 20231110
